FAERS Safety Report 10169420 (Version 5)
Quarter: 2014Q2

REPORT INFORMATION
  Report Type: Spontaneous
  Country: US (occurrence: US)
  Receive Date: 20140513
  Receipt Date: 20140604
  Transmission Date: 20141212
  Serious: Yes (Other)
  Sender: FDA-Public Use
  Company Number: US-PFIZER INC-2014116063

PATIENT
  Sex: Male

DRUGS (4)
  1. TESTOSTERONE CIPIONATE [Suspect]
     Dosage: 200 MG, UNK
  2. TESTOSTERONE CIPIONATE [Suspect]
     Dosage: 200 MG/ML, UNK
  3. TESTOSTERONE CIPIONATE [Suspect]
     Dosage: UNK
     Dates: start: 200904
  4. TESTOSTERONE CIPIONATE [Suspect]
     Dosage: UNK
     Dates: start: 200906

REACTIONS (2)
  - Myocardial infarction [Unknown]
  - Atrial fibrillation [Unknown]
